FAERS Safety Report 10257500 (Version 1)
Quarter: 2014Q2

REPORT INFORMATION
  Report Type: Spontaneous
  Country: US (occurrence: US)
  Receive Date: 20140625
  Receipt Date: 20140625
  Transmission Date: 20141212
  Serious: No
  Sender: FDA-Public Use
  Company Number: US-GLAXOSMITHKLINE-A1045745A

PATIENT
  Age: 44 Year
  Sex: Female

DRUGS (10)
  1. VERAMYST [Suspect]
     Indication: MULTIPLE ALLERGIES
     Dosage: 1SPR TWICE PER DAY
     Route: 045
     Dates: start: 20131001
  2. QNASL [Concomitant]
  3. AMOXICILLIN [Concomitant]
  4. TRAZODONE [Concomitant]
  5. ZOLPIDEM [Concomitant]
  6. SINGULAR [Concomitant]
  7. LAMICTAL [Concomitant]
  8. MELOXICAM [Concomitant]
  9. PROZAC [Concomitant]
  10. UNKNOWN MEDICATION [Concomitant]

REACTIONS (8)
  - Drug ineffective [Unknown]
  - Nasal congestion [Unknown]
  - Upper-airway cough syndrome [Unknown]
  - Cough [Unknown]
  - Choking sensation [Unknown]
  - Dysphagia [Unknown]
  - Nasal dryness [Unknown]
  - Product quality issue [Unknown]
